FAERS Safety Report 4405882-5 (Version None)
Quarter: 2004Q3

REPORT INFORMATION
  Report Type: 
  Country: None (occurrence: None)
  Receive Date: 20040723
  Receipt Date: 20040130
  Transmission Date: 20050211
  Serious: Yes (Life-Threatening, Hospitalization, Other)
  Sender: FDA-Public Use
  Company Number: US-GLAXOSMITHKLINE-A0495963A

PATIENT
  Age: 80 Year

DRUGS (1)
  1. AVANDIA [Suspect]

REACTIONS (1)
  - CARDIAC FAILURE [None]
